FAERS Safety Report 24437861 (Version 1)
Quarter: 2024Q4

REPORT INFORMATION
  Report Type: Spontaneous
  Country: CN (occurrence: CN)
  Receive Date: 20241015
  Receipt Date: 20241015
  Transmission Date: 20250115
  Serious: Yes (Life-Threatening, Other)
  Sender: BAYER HEALTHCARE PHARMACEUTICALS INC.
  Company Number: CN-BAYER-2024A146246

PATIENT
  Age: 60 Year
  Sex: Male

DRUGS (1)
  1. ULTRAVIST [Suspect]
     Active Substance: IOPROMIDE
     Indication: Computerised tomogram
     Dosage: 40 ML, ONCE
     Route: 042
     Dates: start: 20241013, end: 20241013

REACTIONS (12)
  - Anaphylactic shock [Recovering/Resolving]
  - Confusional state [Recovered/Resolved]
  - Cyanosis [Recovering/Resolving]
  - Dyspnoea [None]
  - Urinary incontinence [None]
  - Blood pressure immeasurable [Recovered/Resolved]
  - Trismus [None]
  - Restlessness [None]
  - Heart rate increased [Recovered/Resolved]
  - Pallor [Recovering/Resolving]
  - Vomiting [None]
  - Headache [Not Recovered/Not Resolved]

NARRATIVE: CASE EVENT DATE: 20241013
